FAERS Safety Report 9844737 (Version 1)
Quarter: 2014Q1

REPORT INFORMATION
  Report Type: Report from Study
  Country: US (occurrence: US)
  Receive Date: 20140127
  Receipt Date: 20140127
  Transmission Date: 20141002
  Serious: Yes (Hospitalization)
  Sender: FDA-Public Use
  Company Number: US-ROCHE-1337165

PATIENT
  Sex: Female
  Weight: 19.9 kg

DRUGS (4)
  1. NUTROPIN AQ [Suspect]
     Indication: TURNER^S SYNDROME
     Route: 058
     Dates: start: 20130809
  2. GUANFACINE HYDROCHLORIDE [Concomitant]
     Route: 048
     Dates: start: 20130812
  3. CONCERTA [Concomitant]
     Route: 048
     Dates: start: 20130812
  4. CLONIDINE [Concomitant]
     Route: 048
     Dates: start: 20130812

REACTIONS (1)
  - Inguinal hernia [Recovered/Resolved]
